FAERS Safety Report 7799707-8 (Version None)
Quarter: 2011Q4

REPORT INFORMATION
  Report Type: 
  Country: None (occurrence: None)
  Receive Date: 20111006
  Receipt Date: 20110926
  Transmission Date: 20120403
  Serious: Yes (Hospitalization)
  Sender: FDA-Public Use
  Company Number: PHEH2011US04986

PATIENT
  Sex: Female

DRUGS (5)
  1. GILENYA [Suspect]
     Indication: MULTIPLE SCLEROSIS
     Dosage: 0.5 MG, DAILY
     Route: 048
     Dates: start: 20110914, end: 20110919
  2. METOPROLOL SUCCINATE EXTENDED RELEASE [Concomitant]
     Dosage: 1 DF, QD
  3. MULTI-VITAMINS [Concomitant]
     Dosage: 1 DF, QD
     Route: 048
     Dates: start: 20100429
  4. CALCIUM CARBONATE W/VITAMIN D NOS [Concomitant]
     Dosage: 600MG-200 UNITS,DAILY
     Route: 048
     Dates: start: 20100429
  5. CANASA [Concomitant]
     Dosage: 1000 MG AT TIME OF SLEEP

REACTIONS (8)
  - BUNDLE BRANCH BLOCK RIGHT [None]
  - SINUS BRADYCARDIA [None]
  - ANXIETY [None]
  - LYMPHOCYTE COUNT DECREASED [None]
  - ATRIAL FIBRILLATION [None]
  - PALPITATIONS [None]
  - ARRHYTHMIA [None]
  - HEART RATE IRREGULAR [None]
